FAERS Safety Report 8824753 (Version 2)
Quarter: 2012Q4

REPORT INFORMATION
  Report Type: Report from Study
  Country: ES (occurrence: ES)
  Receive Date: 20121004
  Receipt Date: 20121029
  Transmission Date: 20130627
  Serious: Yes (Hospitalization, Other)
  Sender: FDA-Public Use
  Company Number: ES-PFIZER INC-2012243367

PATIENT
  Age: 56 Year
  Sex: Male

DRUGS (13)
  1. AXITINIB [Suspect]
     Indication: RENAL CELL CARCINOMA
     Dosage: 5 mg, 2x/day
     Dates: start: 20120625
  2. INSULIN DETEMIR [Concomitant]
     Indication: TYPE 2 DIABETES MELLITUS
     Dosage: 6-0-0
  3. KONAKION [Concomitant]
     Dosage: 10 mg, 1x/day
     Route: 048
  4. LEVETIRACETAM [Concomitant]
     Dosage: 250 mg, 2x/day
  5. TRANKIMAZIN [Concomitant]
     Dosage: 1 mg, UNK
  6. TARDYFERON [Concomitant]
     Dosage: 1-0-1
  7. FOLIC ACID [Concomitant]
     Dosage: 5, 1 tablet per day
     Route: 048
  8. TARGIN [Concomitant]
     Dosage: 5/2.5 mg 1-0-1
  9. NOLOTIL /SPA/ [Concomitant]
  10. PANTECTA [Concomitant]
     Dosage: 1-0-0
  11. FORTECORTIN [Concomitant]
     Dosage: 4 mg every 12 h
  12. SEPTRIN FORTE [Concomitant]
     Dosage: 1 tablet every 12 hours for 10 days
  13. ACETAMINOPHEN [Concomitant]
     Dosage: 1 g, UNK

REACTIONS (6)
  - Renal failure [Recovering/Resolving]
  - Proteinuria [Recovering/Resolving]
  - Urinary tract infection [Recovering/Resolving]
  - Escherichia sepsis [Unknown]
  - Nephrotic syndrome [Unknown]
  - Glomerulonephritis [Unknown]
